FAERS Safety Report 17991217 (Version 2)
Quarter: 2020Q3

REPORT INFORMATION
  Report Type: Report from Study
  Country: US (occurrence: US)
  Receive Date: 20200707
  Receipt Date: 20200722
  Transmission Date: 20201103
  Serious: Yes (Death, Hospitalization)
  Sender: FDA-Public Use
  Company Number: US-ACTELION-A-US2020-205691

PATIENT
  Age: 63 Year
  Sex: Female
  Weight: 131.52 kg

DRUGS (2)
  1. AMLODIPINE [Concomitant]
     Active Substance: AMLODIPINE BESYLATE
  2. OPSUMIT [Suspect]
     Active Substance: MACITENTAN
     Indication: PULMONARY HYPERTENSION
     Dosage: 10 MG, QD
     Route: 048

REACTIONS (4)
  - Laryngitis [Unknown]
  - Pneumonia [Unknown]
  - Aphasia [Unknown]
  - Death [Fatal]

NARRATIVE: CASE EVENT DATE: 20200710
